FAERS Safety Report 18977282 (Version 5)
Quarter: 2021Q2

REPORT INFORMATION
  Report Type: Report from Study
  Country: US (occurrence: US)
  Receive Date: 20210306
  Receipt Date: 20210604
  Transmission Date: 20210717
  Serious: Yes (Other)
  Sender: FDA-Public Use
  Company Number: NVSC2021US047617

PATIENT
  Sex: Male

DRUGS (4)
  1. ENTRESTO [Suspect]
     Active Substance: SACUBITRIL\VALSARTAN
     Dosage: 0.5 DF, QD (49/51 MG)
     Route: 048
  2. VALSARTAN. [Suspect]
     Active Substance: VALSARTAN
     Indication: PRODUCT USED FOR UNKNOWN INDICATION
     Dosage: UNK
     Route: 065
  3. ENTRESTO [Suspect]
     Active Substance: SACUBITRIL\VALSARTAN
     Indication: PRODUCT USED FOR UNKNOWN INDICATION
     Dosage: 1 DF, BID (97/103 MG)
     Route: 048
  4. ENTRESTO [Suspect]
     Active Substance: SACUBITRIL\VALSARTAN
     Dosage: 1 DF (97/103 MG)
     Route: 048
     Dates: start: 20210302

REACTIONS (8)
  - Therapeutic response unexpected [Unknown]
  - Sensory loss [Unknown]
  - Inappropriate schedule of product administration [Unknown]
  - Myalgia [Unknown]
  - Spinal cord compression [Unknown]
  - Blood potassium abnormal [Unknown]
  - Muscular weakness [Not Recovered/Not Resolved]
  - Wrong technique in product usage process [Unknown]
